FAERS Safety Report 8483116-2 (Version None)
Quarter: 2012Q2

REPORT INFORMATION
  Report Type: 
  Country: None (occurrence: None)
  Receive Date: 20120625
  Receipt Date: 20120614
  Transmission Date: 20120825
  Serious: Yes (Life-Threatening, Hospitalization)
  Sender: FDA-Public Use
  Company Number: 2012MA005572

PATIENT
  Age: 42 Year
  Sex: Female

DRUGS (12)
  1. NYSTATIN [Concomitant]
  2. METRONIDAZOLE [Concomitant]
  3. BENZYDAMINE [Concomitant]
  4. FLUCLOXACILLIN [Concomitant]
  5. SCHERIPROCT [Concomitant]
  6. GABAPENTIN [Suspect]
     Dosage: 600 MG;QID;PO
     Route: 048
  7. VENLAFAXINE HYDROCHLORIDE [Suspect]
     Dosage: 75 MG;BID;PO
     Route: 048
  8. METHOTREXATE SODIUM [Suspect]
     Dosage: 25 MG;QW;PO
     Route: 048
  9. OMEPRAZOLE [Suspect]
     Dosage: 20 MG;BID;PO
     Route: 048
  10. HYDROXYCHLOROQUINE SULFATE [Suspect]
     Indication: RHEUMATOID ARTHRITIS
     Dosage: 400 MG;QD;PO
     Route: 048
  11. MICONAZOLE [Concomitant]
  12. SULFASALAZINE [Suspect]
     Dosage: 500 MG;PO
     Route: 048

REACTIONS (6)
  - PLATELET COUNT DECREASED [None]
  - ABDOMINAL PAIN [None]
  - DIARRHOEA [None]
  - HAEMATEMESIS [None]
  - INCREASED TENDENCY TO BRUISE [None]
  - BLOOD DISORDER [None]
